FAERS Safety Report 7907106-0 (Version None)
Quarter: 2011Q4

REPORT INFORMATION
  Report Type: 
  Country: None (occurrence: None)
  Receive Date: 20111110
  Receipt Date: 20110705
  Transmission Date: 20120403
  Serious: No
  Sender: FDA-Public Use
  Company Number: US-ASTRAZENECA-2011SE40166

PATIENT
  Sex: Female

DRUGS (2)
  1. ZESTRIL [Suspect]
     Indication: ENDOCARDITIS VIRAL
     Route: 048
  2. ZESTRIL [Suspect]
     Route: 048

REACTIONS (2)
  - COUGH [None]
  - OFF LABEL USE [None]
